FAERS Safety Report 8831559 (Version 1)
Quarter: 2012Q4

REPORT INFORMATION
  Report Type: 
  Country: FR (occurrence: FR)
  Receive Date: 20121009
  Receipt Date: 20121009
  Transmission Date: 20130627
  Serious: Yes (Hospitalization)
  Sender: FDA-Public Use
  Company Number: FR-ROCHE-1139191

PATIENT
  Age: 68 Year
  Sex: Male

DRUGS (5)
  1. RIVOTRIL [Suspect]
     Indication: PAIN
     Route: 048
  2. ALCOHOL [Suspect]
     Indication: PRODUCT USED FOR UNKNOWN INDICATION
     Route: 048
  3. IXPRIM [Concomitant]
  4. MOPRAL (FRANCE) [Concomitant]
  5. BI-PROFENID [Concomitant]

REACTIONS (2)
  - Loss of consciousness [Recovered/Resolved]
  - Disorientation [Recovered/Resolved]
